FAERS Safety Report 9290133 (Version 1)
Quarter: 2013Q2

REPORT INFORMATION
  Report Type: Spontaneous
  Country: JP (occurrence: JP)
  Receive Date: 20130515
  Receipt Date: 20130515
  Transmission Date: 20140414
  Serious: Yes (Death)
  Sender: FDA-Public Use
  Company Number: JP-JNJFOC-20130505741

PATIENT
  Age: 8 Decade
  Sex: Female

DRUGS (2)
  1. FINIBAX [Suspect]
     Indication: COLITIS
     Route: 041
     Dates: start: 20130424, end: 20130424
  2. FINIBAX [Suspect]
     Indication: COLITIS
     Route: 041
     Dates: start: 20130425, end: 20130425

REACTIONS (1)
  - Disseminated intravascular coagulation [Fatal]
